FAERS Safety Report 9444637 (Version 2)
Quarter: 2014Q1

REPORT INFORMATION
  Report Type: Spontaneous
  Country: US (occurrence: US)
  Receive Date: 20130807
  Receipt Date: 20140116
  Transmission Date: 20141002
  Serious: Yes (Death, Hospitalization)
  Sender: FDA-Public Use
  Company Number: US-B.I. PHARMACEUTICALS,INC./RIDGEFIELD-2013-BI-23845BP

PATIENT
  Sex: Male
  Weight: 104.33 kg

DRUGS (11)
  1. PRADAXA [Suspect]
     Dates: start: 20101230, end: 20120328
  2. ZYPREXA [Concomitant]
  3. DIOVAN HCT [Concomitant]
     Dates: end: 20120327
  4. VICODIN [Concomitant]
  5. ATIVAN [Concomitant]
  6. COLACE [Concomitant]
  7. MOBIC [Concomitant]
     Dates: end: 20120327
  8. PREDNISONE [Concomitant]
     Indication: MUSCULOSKELETAL PAIN
  9. CALCIUM WITH VITAMIN D [Concomitant]
  10. CYCLOBENZAPRINE [Concomitant]
  11. CYMBALTA [Concomitant]

REACTIONS (6)
  - Gastrointestinal haemorrhage [Fatal]
  - Anaemia [Fatal]
  - Coagulopathy [Unknown]
  - Renal failure [Unknown]
  - Azotaemia [Unknown]
  - Urinary tract infection enterococcal [Unknown]
